FAERS Safety Report 9801235 (Version 3)
Quarter: 2014Q2

REPORT INFORMATION
  Report Type: Spontaneous
  Country: CH (occurrence: CH)
  Receive Date: 20140107
  Receipt Date: 20140505
  Transmission Date: 20141212
  Serious: Yes (Death, Hospitalization)
  Sender: FDA-Public Use
  Company Number: CH-B.I. PHARMACEUTICALS,INC./RIDGEFIELD-2014-BI-00473SI

PATIENT
  Sex: Male
  Weight: 71 kg

DRUGS (4)
  1. PRADAXA [Suspect]
     Indication: ATRIAL FIBRILLATION
     Dosage: 300 MG
     Route: 048
     Dates: start: 20130224, end: 20130924
  2. NEBULET [Concomitant]
     Indication: HYPERTONIA
     Dosage: 2.5 MG
     Route: 065
     Dates: start: 200802
  3. AMIODARON [Concomitant]
     Indication: ARRHYTHMIA
     Dosage: 200 MG
     Route: 065
     Dates: start: 201303
  4. CORDARONE [Concomitant]
     Dosage: 100 MG
     Route: 065
     Dates: start: 2013

REACTIONS (3)
  - Shock haemorrhagic [Fatal]
  - Aortic aneurysm rupture [Fatal]
  - Post procedural haemorrhage [Fatal]
